FAERS Safety Report 25830081 (Version 1)
Quarter: 2025Q3

REPORT INFORMATION
  Report Type: Spontaneous
  Country: CN (occurrence: CN)
  Receive Date: 20250922
  Receipt Date: 20250922
  Transmission Date: 20251020
  Serious: Yes (Hospitalization, Other)
  Sender: CADILA
  Company Number: CN-CPL-005771

PATIENT
  Age: 58 Year
  Sex: Female

DRUGS (2)
  1. TELMISARTAN [Suspect]
     Active Substance: TELMISARTAN
     Indication: Hypertension
     Dosage: DAILY
  2. ACIPIMOX [Suspect]
     Active Substance: ACIPIMOX
     Indication: Lipid management
     Route: 048

REACTIONS (1)
  - Drug-induced liver injury [Recovered/Resolved]
